FAERS Safety Report 11215711 (Version 1)
Quarter: 2015Q2

REPORT INFORMATION
  Report Type: Spontaneous
  Country: US (occurrence: US)
  Receive Date: 20150624
  Receipt Date: 20150624
  Transmission Date: 20150821
  Serious: Yes (Other)
  Sender: FDA-Public Use
  Company Number: US-PFIZER INC-2015206267

PATIENT
  Age: 82 Year
  Sex: Female

DRUGS (3)
  1. LYRICA [Suspect]
     Active Substance: PREGABALIN
     Indication: NEURALGIA
     Dosage: 50 MG, 1X/DAY
     Route: 048
  2. LYRICA [Suspect]
     Active Substance: PREGABALIN
     Dosage: 50 MG, 3X/DAY
     Route: 048
  3. LYRICA [Suspect]
     Active Substance: PREGABALIN
     Dosage: 100 MG, 1X/DAY, AT NIGHT
     Route: 048

REACTIONS (12)
  - Impaired driving ability [Recovering/Resolving]
  - Dizziness [Recovering/Resolving]
  - Abdominal distension [Recovering/Resolving]
  - Malaise [Recovering/Resolving]
  - Weight decreased [Unknown]
  - Abasia [Recovering/Resolving]
  - Weight increased [Unknown]
  - Depressed mood [Recovering/Resolving]
  - Vision blurred [Recovering/Resolving]
  - Muscle spasms [Recovering/Resolving]
  - Peripheral swelling [Recovering/Resolving]
  - Vaginal haemorrhage [Recovering/Resolving]
